FAERS Safety Report 26017783 (Version 1)
Quarter: 2025Q4

REPORT INFORMATION
  Report Type: Spontaneous
  Country: US (occurrence: US)
  Receive Date: 20251110
  Receipt Date: 20251110
  Transmission Date: 20260117
  Serious: Yes (Hospitalization, Other)
  Sender: SOMERSET THERAPEUTICS, LLC
  Company Number: US-MIT-25-75-US-2025-SOM-LIT-00078

PATIENT
  Age: 24 Year
  Sex: Male

DRUGS (2)
  1. GLYCOPYRROLATE [Suspect]
     Active Substance: GLYCOPYRROLATE
     Indication: Hyperhidrosis
     Route: 065
  2. VORICONAZOLE [Concomitant]
     Active Substance: VORICONAZOLE
     Route: 065

REACTIONS (7)
  - Multiple organ dysfunction syndrome [Recovered/Resolved]
  - Liver injury [Recovered/Resolved]
  - Acute kidney injury [Recovered/Resolved]
  - Rhabdomyolysis [Recovered/Resolved]
  - Disseminated intravascular coagulation [Recovered/Resolved]
  - Heat stroke [Recovered/Resolved]
  - Product use in unapproved indication [Unknown]
